FAERS Safety Report 7016207-3 (Version None)
Quarter: 2010Q3

REPORT INFORMATION
  Report Type: 
  Country: None (occurrence: None)
  Receive Date: 20100927
  Receipt Date: 20090825
  Transmission Date: 20110219
  Serious: No
  Sender: FDA-Public Use
  Company Number: US-ASTRAZENECA-2009SE09876

PATIENT
  Age: 76 Year
  Sex: Female
  Weight: 83 kg

DRUGS (5)
  1. ARIMIDEX [Suspect]
     Indication: BREAST CANCER
     Route: 048
     Dates: start: 20090601
  2. AMLODIPINE [Concomitant]
  3. ASPIRIN [Concomitant]
  4. INDOMETHACIN [Concomitant]
  5. CALCIUM [Concomitant]

REACTIONS (2)
  - BACK PAIN [None]
  - FALL [None]
